FAERS Safety Report 5612997-2 (Version None)
Quarter: 2008Q1

REPORT INFORMATION
  Report Type: 
  Country: None (occurrence: None)
  Receive Date: 20080204
  Receipt Date: 20080122
  Transmission Date: 20080703
  Serious: Yes (Life-Threatening, Hospitalization)
  Sender: FDA-Public Use
  Company Number: GB-RANBAXY-2007RR-10643

PATIENT

DRUGS (4)
  1. RANITIDINE HCL [Suspect]
     Dosage: 50 MG, QD
     Route: 042
  2. HYDROCORTISONE [Suspect]
     Route: 042
  3. EPINEPHRINE [Concomitant]
     Route: 030
  4. OXYGEN [Concomitant]

REACTIONS (3)
  - ANAPHYLACTIC REACTION [None]
  - CARDIO-RESPIRATORY ARREST [None]
  - DRUG INEFFECTIVE [None]
